FAERS Safety Report 8873396 (Version 3)
Quarter: 2012Q4

REPORT INFORMATION
  Report Type: 
  Country: JP (occurrence: JP)
  Receive Date: 20121029
  Receipt Date: 20121121
  Transmission Date: 20130627
  Serious: Yes (Other)
  Sender: FDA-Public Use
  Company Number: JP-B.I. PHARMACEUTICALS,INC./RIDGEFIELD-2012-BP-26657NB

PATIENT
  Age: 76 Year
  Sex: Male

DRUGS (1)
  1. BI-SIFROL [Suspect]
     Indication: RESTLESS LEGS SYNDROME
     Dosage: 0.125 mg
     Route: 048
     Dates: start: 20120907

REACTIONS (2)
  - Ventricular tachycardia [Recovered/Resolved]
  - Electrocardiogram QT prolonged [Recovered/Resolved]
